FAERS Safety Report 12720695 (Version 2)
Quarter: 2016Q4

REPORT INFORMATION
  Report Type: Spontaneous
  Country: US (occurrence: US)
  Receive Date: 20160907
  Receipt Date: 20161114
  Transmission Date: 20170207
  Serious: No
  Sender: FDA-Public Use
  Company Number: US-B.I. PHARMACEUTICALS,INC./RIDGEFIELD-2016-BI-56548BP

PATIENT
  Age: 58 Year
  Sex: Female

DRUGS (1)
  1. ZANTAC [Suspect]
     Active Substance: RANITIDINE HYDROCHLORIDE
     Indication: REFLUX LARYNGITIS
     Route: 048
     Dates: start: 20160825

REACTIONS (4)
  - Headache [Unknown]
  - Diarrhoea [Unknown]
  - Product quality issue [Unknown]
  - Constipation [Unknown]

NARRATIVE: CASE EVENT DATE: 20160825
